FAERS Safety Report 4460433-4 (Version None)
Quarter: 2004Q3

REPORT INFORMATION
  Report Type: 
  Country: None (occurrence: None)
  Receive Date: 20040928
  Receipt Date: 20040708
  Transmission Date: 20050211
  Serious: No
  Sender: FDA-Public Use
  Company Number: US-GLAXOSMITHKLINE-A0517443A

PATIENT
  Sex: Female

DRUGS (3)
  1. SEREVENT [Suspect]
     Indication: ASTHMA
     Dosage: 50MCG TWICE PER DAY
     Route: 055
  2. FLOVENT [Concomitant]
  3. ALBUTEROL [Concomitant]

REACTIONS (3)
  - BLOOD PRESSURE INCREASED [None]
  - DYSPNOEA [None]
  - HOARSENESS [None]
